FAERS Safety Report 25011632 (Version 1)
Quarter: 2025Q1

REPORT INFORMATION
  Report Type: Report from Study
  Country: US (occurrence: US)
  Receive Date: 20250226
  Receipt Date: 20250226
  Transmission Date: 20250409
  Serious: Yes (Life-Threatening, Hospitalization)
  Sender: BIOGEN
  Company Number: US-BIOGEN-2023BI01216845

PATIENT
  Age: 41 Year
  Sex: Male

DRUGS (2)
  1. VUMERITY [Suspect]
     Active Substance: DIROXIMEL FUMARATE
     Indication: Multiple sclerosis
     Route: 050
     Dates: start: 20221103, end: 20221110
  2. VUMERITY [Suspect]
     Active Substance: DIROXIMEL FUMARATE
     Route: 050
     Dates: start: 20221111

REACTIONS (12)
  - Dehydration [Unknown]
  - Hallucination [Not Recovered/Not Resolved]
  - Infection [Not Recovered/Not Resolved]
  - Musculoskeletal disorder [Unknown]
  - Back pain [Unknown]
  - Gait inability [Unknown]
  - Gastrointestinal disorder [Unknown]
  - Staphylococcal infection [Recovered/Resolved]
  - Kidney infection [Recovered/Resolved]
  - Aggression [Unknown]
  - Burning sensation [Unknown]
  - Abdominal pain upper [Unknown]

NARRATIVE: CASE EVENT DATE: 20230601
